FAERS Safety Report 7953409-3 (Version None)
Quarter: 2011Q4

REPORT INFORMATION
  Report Type: 
  Country: None (occurrence: None)
  Receive Date: 20111202
  Receipt Date: 20110730
  Transmission Date: 20120403
  Serious: No
  Sender: FDA-Public Use
  Company Number: US-BAYER-2011-066323

PATIENT
  Age: 18 Year
  Sex: Female

DRUGS (1)
  1. BEYAZ [Suspect]
     Indication: PREMENSTRUAL SYNDROME
     Dosage: 1 DF, QD
     Route: 048
     Dates: start: 20110710

REACTIONS (8)
  - VOMITING [None]
  - ABDOMINAL PAIN UPPER [None]
  - IRRITABILITY [None]
  - ASTHENIA [None]
  - DIARRHOEA [None]
  - FATIGUE [None]
  - ABNORMAL BEHAVIOUR [None]
  - DECREASED APPETITE [None]
